FAERS Safety Report 16986434 (Version 2)
Quarter: 2019Q4

REPORT INFORMATION
  Report Type: Spontaneous
  Country: US (occurrence: US)
  Receive Date: 20191101
  Receipt Date: 20191129
  Transmission Date: 20200122
  Serious: Yes (Hospitalization)
  Sender: FDA-Public Use
  Company Number: US-AMNEAL PHARMACEUTICALS-2019-AMRX-02412

PATIENT
  Sex: Female
  Weight: 48.3 kg

DRUGS (1)
  1. VIGABATRIN. [Suspect]
     Active Substance: VIGABATRIN
     Indication: EPILEPSY
     Dosage: 1500MG IN THE MORNING AND 2000MG IN THE EVENING
     Route: 048
     Dates: start: 2019

REACTIONS (1)
  - Brain tumour operation [Unknown]

NARRATIVE: CASE EVENT DATE: 2019
